FAERS Safety Report 6421640-4 (Version None)
Quarter: 2009Q4

REPORT INFORMATION
  Report Type: 
  Country: None (occurrence: None)
  Receive Date: 20091030
  Receipt Date: 20091020
  Transmission Date: 20100525
  Serious: Yes (Life-Threatening)
  Sender: FDA-Public Use
  Company Number: SI-PFIZER INC-2009279516

PATIENT
  Age: 63 Year

DRUGS (5)
  1. SUTENT [Suspect]
     Indication: METASTATIC RENAL CELL CARCINOMA
     Dosage: 50 MG, 1X/DAY
     Route: 048
     Dates: start: 20090619, end: 20090717
  2. SUTENT [Suspect]
     Dosage: 37.5 MG, 1X/DAY
     Route: 048
     Dates: start: 20090731
  3. DALTEPARIN SODIUM [Concomitant]
     Indication: DEEP VEIN THROMBOSIS
     Dosage: 7500 IU, 1X/DAY
     Route: 058
  4. METHYLPREDNISOLONE [Concomitant]
     Dosage: UNK
     Route: 048
  5. PIPERACILLIN SODIUM AND TAZOBACTAM SODIUM [Concomitant]
     Indication: INFECTION
     Dosage: 4.5 G, 4X/DAY
     Route: 042

REACTIONS (6)
  - DEEP VEIN THROMBOSIS [None]
  - HEPATIC ENZYME INCREASED [None]
  - LEUKOPENIA [None]
  - NEUTROPENIA [None]
  - PULMONARY EMBOLISM [None]
  - THROMBOCYTOPENIA [None]
